FAERS Safety Report 6422766-1 (Version None)
Quarter: 2009Q4

REPORT INFORMATION
  Report Type: 
  Country: None (occurrence: None)
  Receive Date: 20091102
  Receipt Date: 20091023
  Transmission Date: 20100525
  Serious: Yes (Hospitalization)
  Sender: FDA-Public Use
  Company Number: AU-JNJFOC-20090104994

PATIENT
  Sex: Male

DRUGS (4)
  1. REMINYL [Suspect]
     Route: 048
  2. REMINYL [Suspect]
     Route: 048
  3. REMINYL [Suspect]
     Route: 048
  4. REMINYL [Suspect]
     Indication: DEMENTIA
     Route: 048

REACTIONS (1)
  - GASTROINTESTINAL HYPOMOTILITY [None]
